FAERS Safety Report 7943891-X (Version None)
Quarter: 2011Q4

REPORT INFORMATION
  Report Type: 
  Country: None (occurrence: None)
  Receive Date: 20111128
  Receipt Date: 20111121
  Transmission Date: 20120403
  Serious: Yes (Life-Threatening, Hospitalization)
  Sender: FDA-Public Use
  Company Number: DE-ROCHE-1011069

PATIENT
  Sex: Male
  Weight: 74 kg

DRUGS (5)
  1. AMLODIPINE [Concomitant]
     Indication: HYPERTENSION
     Route: 048
  2. PROVAS (GERMANY) [Concomitant]
     Indication: HYPERTENSION
     Route: 048
  3. GLIMEPIRIDE [Concomitant]
     Indication: DIABETES MELLITUS
     Route: 048
  4. TIM-OPHTAL [Concomitant]
     Dosage: DOSE: 0.1
  5. XELODA [Suspect]
     Indication: RECTAL CANCER
     Route: 048
     Dates: start: 20110815

REACTIONS (3)
  - CAROTID ARTERY STENOSIS [None]
  - CEREBROVASCULAR ACCIDENT [None]
  - CEREBRAL INFARCTION [None]
